FAERS Safety Report 6357026-0 (Version None)
Quarter: 2009Q3

REPORT INFORMATION
  Report Type: 
  Country: None (occurrence: None)
  Receive Date: 20090915
  Receipt Date: 20081010
  Transmission Date: 20100115
  Serious: No
  Sender: FDA-Public Use
  Company Number: US-ABBOTT-08P-163-0482163-00

PATIENT
  Sex: Female

DRUGS (4)
  1. DEPAKOTE [Suspect]
     Indication: CONVULSION
     Dosage: NOT REPORTED
     Route: 048
     Dates: start: 20030101, end: 20030101
  2. DEPAKOTE [Suspect]
     Dosage: NOT REPORTED
     Route: 048
     Dates: end: 20080601
  3. DEPAKOTE [Suspect]
     Route: 048
     Dates: start: 20080601
  4. LEVETIRACETAM [Concomitant]
     Indication: CONVULSION
     Route: 048

REACTIONS (3)
  - ALOPECIA [None]
  - DECREASED APPETITE [None]
  - DYSGEUSIA [None]
